FAERS Safety Report 8488212-1 (Version None)
Quarter: 2012Q3

REPORT INFORMATION
  Report Type: 
  Country: None (occurrence: None)
  Receive Date: 20120705
  Receipt Date: 20120628
  Transmission Date: 20120928
  Serious: Yes (Death)
  Sender: FDA-Public Use
  Company Number: JP-ASTELLAS-2012JP004454

PATIENT
  Sex: Male
  Weight: 58 kg

DRUGS (4)
  1. RHEUMATREX [Suspect]
     Dosage: UNK
     Route: 048
     Dates: end: 20090128
  2. PREDNISOLONE [Suspect]
     Dosage: 2.5 MG, BID
     Route: 048
  3. PROGRAF [Suspect]
     Indication: RHEUMATOID ARTHRITIS
     Route: 065
  4. CELEBREX [Concomitant]
     Indication: RHEUMATOID ARTHRITIS
     Dosage: 200 MG, BID
     Route: 048

REACTIONS (1)
  - PNEUMOCYSTIS JIROVECI PNEUMONIA [None]
